FAERS Safety Report 25869978 (Version 1)
Quarter: 2025Q4

REPORT INFORMATION
  Report Type: Spontaneous
  Country: US (occurrence: US)
  Receive Date: 20251001
  Receipt Date: 20251001
  Transmission Date: 20260117
  Serious: Yes (Other)
  Sender: TEVA
  Company Number: US-TEVA-VS-3375509

PATIENT
  Age: 81 Year
  Sex: Female

DRUGS (1)
  1. TETRABENAZINE [Suspect]
     Active Substance: TETRABENAZINE
     Indication: Chorea
     Dosage: TAKING FOR THE LAST 5 YEARS
     Route: 065
     Dates: start: 2020, end: 2025

REACTIONS (4)
  - Condition aggravated [Unknown]
  - Fatigue [Unknown]
  - Lethargy [Unknown]
  - Product use in unapproved indication [Unknown]

NARRATIVE: CASE EVENT DATE: 20200101
